FAERS Safety Report 6958812-6 (Version None)
Quarter: 2010Q3

REPORT INFORMATION
  Report Type: 
  Country: None (occurrence: None)
  Receive Date: 20100831
  Receipt Date: 20100820
  Transmission Date: 20110219
  Serious: Yes (Hospitalization)
  Sender: FDA-Public Use
  Company Number: US-GENZYME-MOZO-1000366

PATIENT
  Sex: Female
  Weight: 76.19 kg

DRUGS (18)
  1. MOZOBIL [Suspect]
     Indication: CHRONIC LYMPHOCYTIC LEUKAEMIA
     Dosage: 420 MCG/KG, 3X/W
     Route: 042
     Dates: start: 20100714, end: 20100801
  2. RITUXIMAB [Concomitant]
     Indication: CHRONIC LYMPHOCYTIC LEUKAEMIA
     Dosage: 375 MG/M2, 3X/W
     Route: 042
     Dates: start: 20100707
  3. COLACE [Concomitant]
     Indication: ABNORMAL FAECES
     Dosage: 2 DF, QD
     Route: 048
     Dates: start: 20100730
  4. ZOLPIDEM TARTRATE [Concomitant]
     Indication: INSOMNIA
     Dosage: 5 MG, PRN
     Route: 048
  5. CITRUCEL [Concomitant]
     Indication: CONSTIPATION
     Dosage: 1 DF, QD
     Route: 048
     Dates: start: 20100707
  6. LEVOTHYROXINE SODIUM [Concomitant]
     Indication: PROPHYLAXIS
     Dosage: 88 MCG, QD
     Route: 048
  7. CLONAZEPAM [Concomitant]
     Indication: ANXIETY
     Dosage: 1 MG, QD
     Route: 048
     Dates: start: 20100614
  8. ALLOPURINOL [Concomitant]
     Indication: PROPHYLAXIS
     Dosage: 300 MG, UNK
     Dates: start: 20100707, end: 20100721
  9. DIPHENHYDRAMINE HCL [Concomitant]
     Indication: INSOMNIA
     Dosage: 25 MG, PRN
     Route: 048
     Dates: start: 20100614
  10. ACYCLOVIR [Concomitant]
     Indication: HERPES SIMPLEX
     Dosage: 400 MG, BID
     Route: 048
     Dates: start: 20100614
  11. BACTRIM [Concomitant]
     Indication: PNEUMOCYSTIS JIROVECI PNEUMONIA
     Dosage: 1 DF, 3X/W
     Route: 048
  12. MULTI-VITAMIN [Concomitant]
     Indication: PRODUCT USED FOR UNKNOWN INDICATION
     Dosage: 1 DF, QD
     Route: 048
  13. CALCIUM D [Concomitant]
     Indication: PRODUCT USED FOR UNKNOWN INDICATION
     Dosage: UNK
     Dates: start: 20100614
  14. LIDOCAINE [Concomitant]
     Indication: GLOSSODYNIA
     Dosage: UNK
     Route: 061
  15. LOVASTATIN [Concomitant]
     Indication: HYPERCHOLESTEROLAEMIA
     Dosage: 40 MG, QD
     Route: 048
  16. OMEGA-3 FATTY ACIDS [Concomitant]
     Indication: PRODUCT USED FOR UNKNOWN INDICATION
     Dosage: 2000 MG, QD
     Route: 048
     Dates: start: 20100614
  17. LORATADINE [Concomitant]
     Indication: MULTIPLE ALLERGIES
     Dosage: UNK
     Route: 048
     Dates: start: 20100614
  18. NIACIN [Concomitant]
     Indication: HYPERCHOLESTEROLAEMIA
     Dosage: UNK
     Dates: start: 20100614

REACTIONS (3)
  - DYSPNOEA [None]
  - MYELODYSPLASTIC SYNDROME [None]
  - PYREXIA [None]
